FAERS Safety Report 5478156-1 (Version None)
Quarter: 2007Q4

REPORT INFORMATION
  Report Type: 
  Country: None (occurrence: None)
  Receive Date: 20071005
  Receipt Date: 20070124
  Transmission Date: 20080405
  Serious: No
  Sender: FDA-Public Use
  Company Number: US-BRISTOL-MYERS SQUIBB COMPANY-13655006

PATIENT
  Age: 71 Year
  Sex: Female
  Weight: 77 kg

DRUGS (1)
  1. AVAPRO [Suspect]
     Indication: BLOOD PRESSURE INCREASED
     Route: 048

REACTIONS (3)
  - LIP SWELLING [None]
  - RHINORRHOEA [None]
  - SNEEZING [None]
